FAERS Safety Report 6962398-X (Version None)
Quarter: 2010Q3

REPORT INFORMATION
  Report Type: 
  Country: None (occurrence: None)
  Receive Date: 20100823
  Receipt Date: 20100719
  Transmission Date: 20110219
  Serious: No
  Sender: FDA-Public Use
  Company Number: 015749

PATIENT
  Sex: Female
  Weight: 95.2 kg

DRUGS (5)
  1. CIMZIA [Suspect]
     Indication: CROHN'S DISEASE
     Dosage: 400 MG 1X/28 DAYS SUBCUTANEOUS, 400 MG 1X/28 DAYS SUBCUTANEOUS
     Route: 058
     Dates: start: 20100301, end: 20100101
  2. CIMZIA [Suspect]
     Indication: CROHN'S DISEASE
     Dosage: 400 MG 1X/28 DAYS SUBCUTANEOUS, 400 MG 1X/28 DAYS SUBCUTANEOUS
     Route: 058
     Dates: start: 20100703
  3. HYDROCODONE [Concomitant]
  4. ALPRAZOLAM [Concomitant]
  5. FLEXERIL [Concomitant]

REACTIONS (1)
  - ARTHRALGIA [None]
